FAERS Safety Report 13704064 (Version 1)
Quarter: 2017Q2

REPORT INFORMATION
  Report Type: Spontaneous
  Country: TH (occurrence: TH)
  Receive Date: 20170629
  Receipt Date: 20170629
  Transmission Date: 20170830
  Serious: Yes (Life-Threatening, Hospitalization, Other)
  Sender: FDA-Public Use
  Company Number: PHHY2017TH094412

PATIENT
  Age: 64 Year
  Sex: Male

DRUGS (5)
  1. ENTACAPONE. [Suspect]
     Active Substance: ENTACAPONE
     Indication: PARKINSON^S DISEASE
     Dosage: 500 MG, QD
     Route: 065
  2. LEVODOPA+BENSERAZIDE [Suspect]
     Active Substance: BENSERAZIDE\LEVODOPA
     Indication: PARKINSON^S DISEASE
     Dosage: 650 MG, QD
     Route: 065
  3. BENZHEXOL [Suspect]
     Active Substance: TRIHEXYPHENIDYL
     Indication: PARKINSON^S DISEASE
     Dosage: 2 MG, QD
     Route: 065
  4. PIRIBEDIL [Suspect]
     Active Substance: PIRIBEDIL
     Indication: PARKINSON^S DISEASE
     Dosage: 150 MG, QD
     Route: 065
  5. LEVODOPA+BENSERAZIDE [Suspect]
     Active Substance: BENSERAZIDE\LEVODOPA
     Dosage: 950 MG, QD
     Route: 065

REACTIONS (4)
  - Dyskinesia [Recovering/Resolving]
  - Therapeutic response shortened [Unknown]
  - Rhabdomyolysis [Recovering/Resolving]
  - Loss of personal independence in daily activities [Unknown]
